FAERS Safety Report 18526985 (Version 1)
Quarter: 2020Q4

REPORT INFORMATION
  Report Type: Spontaneous
  Country: US (occurrence: US)
  Receive Date: 20201120
  Receipt Date: 20201120
  Transmission Date: 20210114
  Serious: Yes (Other)
  Sender: FDA-Public Use
  Company Number: US-MACLEODS PHARMACEUTICALS US LTD-MAC2020029172

PATIENT

DRUGS (1)
  1. TRIAMCINOLONE [Suspect]
     Active Substance: TRIAMCINOLONE
     Indication: MACULAR FIBROSIS
     Dosage: UNK, INTRAOCULAR

REACTIONS (2)
  - Blindness [Not Recovered/Not Resolved]
  - Eye infection toxoplasmal [Recovering/Resolving]
